FAERS Safety Report 10648440 (Version 1)
Quarter: 2014Q4

REPORT INFORMATION
  Report Type: Spontaneous
  Country: US (occurrence: None)
  Receive Date: 20141211
  Receipt Date: 20141211
  Transmission Date: 20150529
  Serious: No
  Sender: FDA-Public Use
  Company Number: None

PATIENT
  Age: 4 Year
  Sex: Female
  Weight: 17.24 kg

DRUGS (1)
  1. TAMIFLU [Suspect]
     Active Substance: OSELTAMIVIR PHOSPHATE
     Indication: PRODUCT USED FOR UNKNOWN INDICATION
     Route: 048
     Dates: start: 20141205, end: 20141205

REACTIONS (6)
  - Incoherent [None]
  - Hallucination [None]
  - Screaming [None]
  - Confusional state [None]
  - Hearing impaired [None]
  - Tremor [None]

NARRATIVE: CASE EVENT DATE: 20141205
